FAERS Safety Report 11324275 (Version 1)
Quarter: 2015Q3

REPORT INFORMATION
  Report Type: Spontaneous
  Country: US (occurrence: US)
  Receive Date: 20150730
  Receipt Date: 20150730
  Transmission Date: 20151125
  Serious: Yes (Other)
  Sender: FDA-Public Use
  Company Number: US-PROCTER_AND_GAMBLE-CIO15045112

PATIENT
  Sex: Female

DRUGS (1)
  1. CREST PRO-HEALTH (STANNOUS FLUORIDE) [Suspect]
     Active Substance: STANNOUS FLUORIDE
     Dosage: ONCE
     Route: 002
     Dates: start: 20150715, end: 20150715

REACTIONS (10)
  - Stomatitis [Not Recovered/Not Resolved]
  - Oral pain [None]
  - Pharyngeal oedema [Recovering/Resolving]
  - Glossodynia [Not Recovered/Not Resolved]
  - Dyspnoea [Unknown]
  - Oral pain [Not Recovered/Not Resolved]
  - Lip swelling [Recovering/Resolving]
  - Oral mucosal exfoliation [Not Recovered/Not Resolved]
  - Mouth swelling [Recovering/Resolving]
  - Hypophagia [Not Recovered/Not Resolved]

NARRATIVE: CASE EVENT DATE: 20150715
